FAERS Safety Report 20524029 (Version 1)
Quarter: 2022Q1

REPORT INFORMATION
  Report Type: Spontaneous
  Country: US (occurrence: None)
  Receive Date: 20220228
  Receipt Date: 20220228
  Transmission Date: 20220423
  Serious: Yes (Hospitalization, Other)
  Sender: FDA-Public Use
  Company Number: US-VistaPharm, Inc.-VER202202-000140

PATIENT
  Sex: Male

DRUGS (1)
  1. ACETAMINOPHEN\HYDROCODONE [Suspect]
     Active Substance: ACETAMINOPHEN\HYDROCODONE
     Indication: Product used for unknown indication
     Dosage: 200
     Route: 048

REACTIONS (3)
  - Metabolic acidosis [Recovered/Resolved]
  - Encephalopathy [Recovered/Resolved]
  - Toxicity to various agents [Recovered/Resolved]
